FAERS Safety Report 14874178 (Version 2)
Quarter: 2018Q2

REPORT INFORMATION
  Report Type: Spontaneous
  Country: MY (occurrence: MY)
  Receive Date: 20180510
  Receipt Date: 20180522
  Transmission Date: 20180711
  Serious: Yes (Hospitalization, Other)
  Sender: FDA-Public Use
  Company Number: MY-PFIZER INC-2018129795

PATIENT
  Age: 32 Year
  Sex: Female

DRUGS (5)
  1. CARDIPRIN [Concomitant]
     Indication: SYSTEMIC LUPUS ERYTHEMATOSUS
     Dosage: 100 MG, 1X/DAY
  2. HYDROXYCHLOROQUINE [Concomitant]
     Active Substance: HYDROXYCHLOROQUINE
     Indication: SYSTEMIC LUPUS ERYTHEMATOSUS
     Dosage: 200 MG, 1X/DAY
  3. PREDNISOLONE. [Suspect]
     Active Substance: PREDNISOLONE
     Indication: SYSTEMIC LUPUS ERYTHEMATOSUS
     Dosage: 1 MG/KG, UNK
     Route: 048
  4. TINZAPARIN [Concomitant]
     Active Substance: TINZAPARIN
     Indication: SYSTEMIC LUPUS ERYTHEMATOSUS
     Dosage: 3500 IU, 1X/DAY
     Route: 058
  5. METHYLPREDNISOLONE. [Suspect]
     Active Substance: METHYLPREDNISOLONE
     Indication: SYSTEMIC LUPUS ERYTHEMATOSUS
     Dosage: 500 MG, DAILY

REACTIONS (4)
  - Respiratory failure [Recovering/Resolving]
  - Bacteraemia [Recovering/Resolving]
  - Urinary tract infection [Unknown]
  - Mycobacterium abscessus infection [Recovering/Resolving]
